FAERS Safety Report 18028941 (Version 6)
Quarter: 2020Q3

REPORT INFORMATION
  Report Type: Report from Study
  Country: US (occurrence: US)
  Receive Date: 20200716
  Receipt Date: 20200915
  Transmission Date: 20201103
  Serious: No
  Sender: FDA-Public Use
  Company Number: US-BIOVITRUM-2020US3524

PATIENT
  Sex: Female

DRUGS (2)
  1. KINERET [Suspect]
     Active Substance: ANAKINRA
     Indication: RHEUMATOID ARTHRITIS
     Route: 058
     Dates: start: 20200616
  2. KINERET [Suspect]
     Active Substance: ANAKINRA
     Route: 058
     Dates: start: 20200621, end: 20200824

REACTIONS (8)
  - Drug ineffective [Unknown]
  - Hypoaesthesia [Unknown]
  - Fatigue [Unknown]
  - Rash macular [Unknown]
  - Pain in extremity [Unknown]
  - Arthralgia [Unknown]
  - Localised infection [Unknown]
  - Product dose omission issue [Recovered/Resolved]
